FAERS Safety Report 18312262 (Version 1)
Quarter: 2020Q3

REPORT INFORMATION
  Report Type: Spontaneous
  Country: AU (occurrence: AU)
  Receive Date: 20200925
  Receipt Date: 20200925
  Transmission Date: 20201103
  Serious: Yes (Hospitalization, Other)
  Sender: FDA-Public Use
  Company Number: AU-MYLANLABS-2020M1081184

PATIENT
  Age: 30 Year
  Sex: Female

DRUGS (2)
  1. IBUPROFEN. [Suspect]
     Active Substance: IBUPROFEN
     Indication: DYSMENORRHOEA
     Route: 065
  2. PARACETAMOL [Suspect]
     Active Substance: ACETAMINOPHEN
     Indication: DYSMENORRHOEA
     Dosage: ORAL MODIFIED RELEASE PARACETAMOL TABLETS ( 4 TABLETS EVERY 3?4 HOURS).
     Route: 048

REACTIONS (6)
  - Metabolic acidosis [Recovered/Resolved]
  - Intentional product misuse [Recovered/Resolved]
  - Gastric ulcer perforation [Unknown]
  - Glutathione decreased [Recovered/Resolved]
  - Overdose [Recovered/Resolved]
  - Pyroglutamic acidosis [Recovered/Resolved]
